FAERS Safety Report 19964597 (Version 1)
Quarter: 2021Q4

REPORT INFORMATION
  Report Type: Other
  Country: MY (occurrence: MY)
  Receive Date: 20211018
  Receipt Date: 20211018
  Transmission Date: 20220303
  Serious: Yes (Hospitalization)
  Sender: FDA-Public Use
  Company Number: MY-MERCK HEALTHCARE KGAA-9271200

PATIENT
  Age: 41 Year
  Sex: Female

DRUGS (1)
  1. METFORMIN [Suspect]
     Active Substance: METFORMIN HYDROCHLORIDE
     Indication: Gestational diabetes

REACTIONS (4)
  - Placenta accreta [Unknown]
  - Uterine rupture [Unknown]
  - Appendicitis perforated [Unknown]
  - Maternal exposure during pregnancy [Unknown]
